FAERS Safety Report 4743924-8 (Version None)
Quarter: 2005Q3

REPORT INFORMATION
  Report Type: 
  Country: None (occurrence: None)
  Receive Date: 20050809
  Receipt Date: 20050728
  Transmission Date: 20060218
  Serious: Yes (Hospitalization)
  Sender: FDA-Public Use
  Company Number: 2005107942

PATIENT
  Age: 65 Year
  Sex: Female
  Weight: 70 kg

DRUGS (5)
  1. XANAX [Suspect]
     Indication: ILL-DEFINED DISORDER
     Dosage: 37 MEQ (25 MG, 1 IN 1 D), ORAL
     Route: 048
     Dates: start: 19980701
  2. IMOVANE (ZOPICLONE) [Suspect]
     Indication: SLEEP DISORDER
     Dosage: 1 IN 1 D, ORAL
     Route: 048
     Dates: start: 19990701
  3. IXEL (MILNACIPRAN) [Suspect]
     Indication: DEPRESSION
     Dosage: 2 DF (2 IN 1 D), ORAL
     Route: 049
     Dates: start: 20020701, end: 20050513
  4. VALPROATE SODIUM [Suspect]
     Indication: ILL-DEFINED DISORDER
     Dosage: 900 MG (300 MG), ORAL
     Route: 048
     Dates: start: 19980701
  5. ATHYMIL (MIANSERIN HYDROCHLORIDE) [Suspect]
     Indication: DEPRESSION
     Dosage: 60 MG (60 MG), ORAL
     Route: 048
     Dates: start: 20020701

REACTIONS (5)
  - ANGLE CLOSURE GLAUCOMA [None]
  - DEPRESSION [None]
  - EYE DISORDER [None]
  - HYPERTONIA [None]
  - SLEEP DISORDER [None]
